FAERS Safety Report 8846547 (Version 2)
Quarter: 2012Q4

REPORT INFORMATION
  Report Type: 
  Country: US (occurrence: US)
  Receive Date: 20121017
  Receipt Date: 20121106
  Transmission Date: 20130627
  Serious: Yes (Other)
  Sender: FDA-Public Use
  Company Number: US-GLAXOSMITHKLINE-A0997710A

PATIENT
  Age: 7 Month
  Sex: Male

DRUGS (2)
  1. ZANTAC [Suspect]
     Indication: ILL-DEFINED DISORDER
     Dosage: 3ML Twice per day
     Route: 048
     Dates: start: 2012
  2. MYCOSTATIN [Concomitant]

REACTIONS (1)
  - Candidiasis [Recovered/Resolved]
